FAERS Safety Report 17048610 (Version 1)
Quarter: 2019Q4

REPORT INFORMATION
  Report Type: Spontaneous
  Country: US (occurrence: US)
  Receive Date: 20191118
  Receipt Date: 20191118
  Transmission Date: 20200122
  Serious: Yes (Disabling)
  Sender: FDA-Public Use
  Company Number: None

PATIENT
  Age: 76 Year
  Sex: Male
  Weight: 88.65 kg

DRUGS (12)
  1. TAMSOLUSIN .4MG [Concomitant]
  2. DOCUSATE 200MG [Concomitant]
  3. TYLENOL 625MG [Concomitant]
  4. GARLIC. [Concomitant]
     Active Substance: GARLIC
  5. FISH OIL [Concomitant]
     Active Substance: FISH OIL
  6. MULTIVITAMIN [Concomitant]
     Active Substance: VITAMINS
  7. VITAM B12 1000MCG [Concomitant]
  8. NEXIUM [Concomitant]
     Active Substance: ESOMEPRAZOLE MAGNESIUM
  9. OMEGA 3,6,9 [Concomitant]
  10. ATORVASTATIN [Suspect]
     Active Substance: ATORVASTATIN
     Indication: BLOOD CHOLESTEROL INCREASED
     Dosage: ?          QUANTITY:1 TABLET(S);?
     Route: 048
     Dates: start: 20180201, end: 20190601
  11. ALLOPURINOL. [Concomitant]
     Active Substance: ALLOPURINOL
  12. VITAMIN D3 1000IU [Concomitant]

REACTIONS (3)
  - Muscle spasms [None]
  - Muscular weakness [None]
  - Asthenia [None]

NARRATIVE: CASE EVENT DATE: 20190101
